FAERS Safety Report 5826014-2 (Version None)
Quarter: 2008Q3

REPORT INFORMATION
  Report Type: 
  Country: None (occurrence: None)
  Receive Date: 20080729
  Receipt Date: 20080721
  Transmission Date: 20090109
  Serious: Yes (Hospitalization)
  Sender: FDA-Public Use
  Company Number: US-SANOFI-SYNTHELABO-A03200802926

PATIENT
  Age: 75 Year
  Sex: Female

DRUGS (2)
  1. DIOVAN [Concomitant]
     Indication: DRUG USE FOR UNKNOWN INDICATION
     Dosage: UNK
     Route: 065
  2. PLAVIX [Suspect]
     Indication: MUSCULOSKELETAL DISCOMFORT
     Route: 048
     Dates: start: 20080719

REACTIONS (3)
  - DIZZINESS [None]
  - FALL [None]
  - MEMORY IMPAIRMENT [None]
